FAERS Safety Report 8270657-6 (Version None)
Quarter: 2012Q2

REPORT INFORMATION
  Report Type: 
  Country: None (occurrence: None)
  Receive Date: 20120405
  Receipt Date: 20120321
  Transmission Date: 20120825
  Serious: Yes (Other)
  Sender: FDA-Public Use
  Company Number: 2012MPI00064

PATIENT
  Age: 38 Year
  Sex: Male

DRUGS (4)
  1. VALACICLOVIR [Concomitant]
  2. BRENTUXIMAB VEDOTIN (BRENTUXIMAB VEDOTIN) INJECTION [Suspect]
     Indication: HODGKIN'S DISEASE
     Dosage: 1.8 MG/KG, QCYCLE, INTRAVENOUS
     Route: 042
     Dates: start: 20120202
  3. PREDNISOLONE ACETATE [Concomitant]
  4. BACTRIM [Concomitant]

REACTIONS (1)
  - CYTOLYTIC HEPATITIS [None]
